FAERS Safety Report 22873094 (Version 3)
Quarter: 2024Q2

REPORT INFORMATION
  Report Type: Spontaneous
  Country: SE (occurrence: SE)
  Receive Date: 20230828
  Receipt Date: 20240626
  Transmission Date: 20240715
  Serious: Yes (Life-Threatening, Other)
  Sender: FDA-Public Use
  Company Number: None

PATIENT
  Age: 37 Year
  Sex: Male

DRUGS (4)
  1. DUPIXENT [Suspect]
     Active Substance: DUPILUMAB
     Indication: Dermatitis atopic
     Dosage: 300 MG, QOW
     Route: 058
     Dates: start: 20200707, end: 20220819
  2. DUPIXENT [Suspect]
     Active Substance: DUPILUMAB
     Indication: Neurodermatitis
  3. DUPIXENT [Suspect]
     Active Substance: DUPILUMAB
     Indication: Eczema
  4. NAPROXEN ABECE [Concomitant]
     Dosage: SINGLE/OCCASIONAL
     Route: 048
     Dates: start: 20220818

REACTIONS (2)
  - Acute hepatic failure [Recovered/Resolved]
  - Liver transplant [Recovering/Resolving]

NARRATIVE: CASE EVENT DATE: 20220819
